FAERS Safety Report 22166588 (Version 1)
Quarter: 2023Q2

REPORT INFORMATION
  Report Type: Spontaneous
  Country: US (occurrence: US)
  Receive Date: 20230403
  Receipt Date: 20230403
  Transmission Date: 20230722
  Serious: No
  Sender: FDA-Public Use
  Company Number: US-MAYNE PHARMA-2022MYN000116

PATIENT

DRUGS (1)
  1. LIOTHYRONINE [Suspect]
     Active Substance: LIOTHYRONINE
     Indication: Hypothyroidism
     Dosage: 15 MCG, BID
     Route: 048

REACTIONS (3)
  - Hot flush [Unknown]
  - Menstruation delayed [Unknown]
  - Insomnia [Unknown]

NARRATIVE: CASE EVENT DATE: 20220320
